FAERS Safety Report 25110623 (Version 1)
Quarter: 2025Q1

REPORT INFORMATION
  Report Type: Spontaneous
  Country: CN (occurrence: CN)
  Receive Date: 20250324
  Receipt Date: 20250324
  Transmission Date: 20250408
  Serious: Yes (Hospitalization)
  Sender: ABBVIE
  Company Number: CN-ABBVIE-6191242

PATIENT
  Age: 62 Year
  Sex: Female

DRUGS (5)
  1. VENCLEXTA [Suspect]
     Active Substance: VENETOCLAX
     Indication: Acute biphenotypic leukaemia
     Dosage: DAY 3 TO DAY 28
     Route: 048
     Dates: start: 20250220
  2. VENCLEXTA [Suspect]
     Active Substance: VENETOCLAX
     Indication: Acute biphenotypic leukaemia
     Dosage: DAY 1
     Route: 048
     Dates: start: 20250218, end: 20250218
  3. VENCLEXTA [Suspect]
     Active Substance: VENETOCLAX
     Indication: Acute biphenotypic leukaemia
     Dosage: DAY 2
     Route: 048
     Dates: start: 20250219, end: 20250219
  4. AZACITIDINE [Concomitant]
     Active Substance: AZACITIDINE
     Indication: Acute biphenotypic leukaemia
     Dosage: DAY 1 TO DAY 6
     Route: 058
     Dates: start: 20250221, end: 20250226
  5. AZACITIDINE [Concomitant]
     Active Substance: AZACITIDINE
     Indication: Acute biphenotypic leukaemia
     Dosage: DAY 7
     Route: 058
     Dates: start: 20250227, end: 20250227

REACTIONS (1)
  - Myelosuppression [Recovering/Resolving]

NARRATIVE: CASE EVENT DATE: 20250306
